FAERS Safety Report 10587454 (Version 1)
Quarter: 2014Q4

REPORT INFORMATION
  Report Type: Spontaneous
  Country: US (occurrence: US)
  Receive Date: 20141117
  Receipt Date: 20141117
  Transmission Date: 20150529
  Serious: No
  Sender: FDA-Public Use
  Company Number: US-PFIZER INC-2014310565

PATIENT
  Age: 50 Year
  Sex: Male
  Weight: 54.42 kg

DRUGS (1)
  1. VIAGRA [Suspect]
     Active Substance: SILDENAFIL CITRATE
     Indication: ERECTILE DYSFUNCTION
     Dosage: 50 MG, 1 TABLET ONE HALF HOUR BEFORE BEING SEEN BY THE DOCTOR
     Route: 048

REACTIONS (4)
  - Semen analysis abnormal [Unknown]
  - Ejaculation disorder [Unknown]
  - Testicular swelling [Unknown]
  - Semen volume increased [Unknown]
